FAERS Safety Report 10769478 (Version 1)
Quarter: 2015Q1

REPORT INFORMATION
  Report Type: Spontaneous
  Country: JP (occurrence: JP)
  Receive Date: 20150206
  Receipt Date: 20150206
  Transmission Date: 20150721
  Serious: Yes (Other)
  Sender: FDA-Public Use
  Company Number: JP-PFIZER INC-2015047179

PATIENT
  Age: 68 Year
  Sex: Female

DRUGS (2)
  1. PREGABALIN. [Suspect]
     Active Substance: PREGABALIN
     Dosage: 50 MG/DAY
     Route: 048
  2. PREGABALIN. [Suspect]
     Active Substance: PREGABALIN
     Indication: POST HERPETIC NEURALGIA
     Dosage: 25 MG/DAY
     Route: 048

REACTIONS (5)
  - Altered state of consciousness [Recovering/Resolving]
  - Action tremor [Recovering/Resolving]
  - Muscular weakness [Recovering/Resolving]
  - Dysarthria [Recovering/Resolving]
  - Abasia [Recovering/Resolving]
